FAERS Safety Report 4528250-4 (Version None)
Quarter: 2004Q4

REPORT INFORMATION
  Report Type: 
  Country: None (occurrence: None)
  Receive Date: 20041130
  Receipt Date: 20041025
  Transmission Date: 20050328
  Serious: No
  Sender: FDA-Public Use
  Company Number: WAES 0410USA03710

PATIENT
  Age: 62 Year
  Sex: Female

DRUGS (2)
  1. ZETIA [Suspect]
     Indication: HYPERCHOLESTEROLAEMIA
     Dosage: PO
     Route: 048
     Dates: start: 20030801, end: 20041018
  2. AZITHROMYCIN [Concomitant]

REACTIONS (3)
  - COUGH [None]
  - LOW DENSITY LIPOPROTEIN INCREASED [None]
  - UPPER RESPIRATORY TRACT INFLAMMATION [None]
